FAERS Safety Report 12566837 (Version 1)
Quarter: 2016Q3

REPORT INFORMATION
  Report Type: Report from Study
  Country: IN (occurrence: IN)
  Receive Date: 20160718
  Receipt Date: 20160718
  Transmission Date: 20161109
  Serious: Yes (Death, Hospitalization, Other)
  Sender: FDA-Public Use
  Company Number: IN-PFIZER INC-2016339746

PATIENT
  Age: 24 Year
  Sex: Male

DRUGS (1)
  1. PHENYTOIN. [Suspect]
     Active Substance: PHENYTOIN
     Indication: FRONTAL LOBE EPILEPSY
     Dosage: UNK

REACTIONS (2)
  - Rash [Unknown]
  - Drug-induced liver injury [Fatal]
